FAERS Safety Report 17919960 (Version 1)
Quarter: 2020Q2

REPORT INFORMATION
  Report Type: Spontaneous
  Country: US (occurrence: US)
  Receive Date: 20200620
  Receipt Date: 20200620
  Transmission Date: 20200714
  Serious: Yes (Death, Other)
  Sender: FDA-Public Use
  Company Number: US-SPECGX-T202001140

PATIENT
  Age: 10 Month
  Sex: Female
  Weight: 9 kg

DRUGS (2)
  1. METHADOSE [Suspect]
     Active Substance: METHADONE HYDROCHLORIDE
     Indication: CRYING
     Dosage: UNK
     Route: 064
  2. METHADOSE [Suspect]
     Active Substance: METHADONE HYDROCHLORIDE
     Dosage: UNK
     Route: 048

REACTIONS (5)
  - Foetal exposure during pregnancy [Unknown]
  - Toxicity to various agents [Fatal]
  - Product use issue [Unknown]
  - Drug diversion [Unknown]
  - Product use in unapproved indication [Unknown]
